FAERS Safety Report 13160280 (Version 2)
Quarter: 2017Q1

REPORT INFORMATION
  Report Type: Spontaneous
  Country: PE (occurrence: PE)
  Receive Date: 20170127
  Receipt Date: 20170313
  Transmission Date: 20170428
  Serious: No
  Sender: FDA-Public Use
  Company Number: PE-PFIZER INC-2016444493

PATIENT
  Age: 90 Year
  Sex: Female

DRUGS (3)
  1. LIPITOR [Suspect]
     Active Substance: ATORVASTATIN CALCIUM
     Dosage: 20 MG, DAILY
     Dates: start: 201609, end: 201702
  2. LIPITOR [Suspect]
     Active Substance: ATORVASTATIN CALCIUM
     Indication: BLOOD CHOLESTEROL
     Dosage: 40 MG, DAILY
     Dates: start: 201512, end: 201609
  3. CARDIOPLUS [Concomitant]
     Indication: BLOOD PRESSURE ABNORMAL
     Dosage: UNK

REACTIONS (2)
  - Abdominal pain upper [Not Recovered/Not Resolved]
  - Anaemia [Not Recovered/Not Resolved]
